FAERS Safety Report 25060421 (Version 1)
Quarter: 2025Q1

REPORT INFORMATION
  Report Type: Spontaneous
  Country: AU (occurrence: AU)
  Receive Date: 20250310
  Receipt Date: 20250310
  Transmission Date: 20250409
  Serious: Yes (Other)
  Sender: BRISTOL-MYERS SQUIBB COMPANY
  Company Number: AU-BRISTOL-MYERS SQUIBB COMPANY-2025-034390

PATIENT
  Age: 71 Year
  Sex: Female

DRUGS (9)
  1. ELIQUIS [Suspect]
     Active Substance: APIXABAN
     Indication: Product used for unknown indication
     Dates: start: 20250109
  2. ELIQUIS [Suspect]
     Active Substance: APIXABAN
     Dates: start: 20250110
  3. APO TELMISARTAN [Concomitant]
     Indication: Product used for unknown indication
  4. APX AMITRIPTYLINE [Concomitant]
     Indication: Product used for unknown indication
  5. APX ROSUVASTATIN [Concomitant]
     Indication: Product used for unknown indication
  6. BECLOMETHASONE\FORMOTEROL [Concomitant]
     Active Substance: BECLOMETHASONE\FORMOTEROL
     Indication: Product used for unknown indication
  7. BIMATOPROST\TIMOLOL [Concomitant]
     Active Substance: BIMATOPROST\TIMOLOL
     Indication: Product used for unknown indication
  8. SIMBRINZA [Concomitant]
     Active Substance: BRIMONIDINE TARTRATE\BRINZOLAMIDE
     Indication: Product used for unknown indication
  9. SOLONE [PREDNISOLONE] [Concomitant]
     Indication: Product used for unknown indication
     Dates: start: 20250108, end: 20250112

REACTIONS (1)
  - Hallucination [Recovering/Resolving]

NARRATIVE: CASE EVENT DATE: 20250112
